FAERS Safety Report 5504973-5 (Version None)
Quarter: 2007Q4

REPORT INFORMATION
  Report Type: 
  Country: None (occurrence: None)
  Receive Date: 20071031
  Receipt Date: 20071017
  Transmission Date: 20080405
  Serious: Yes (Death)
  Sender: FDA-Public Use
  Company Number: 2007BI022180

PATIENT
  Sex: Male

DRUGS (1)
  1. AVONEX [Suspect]
     Indication: MULTIPLE SCLEROSIS
     Dosage: 30 UG,QW;IM
     Route: 030
     Dates: start: 19970101, end: 20070617

REACTIONS (2)
  - CEREBRAL THROMBOSIS [None]
  - MYOCARDIAL INFARCTION [None]
